FAERS Safety Report 21927553 (Version 1)
Quarter: 2023Q1

REPORT INFORMATION
  Report Type: Spontaneous
  Country: GB (occurrence: None)
  Receive Date: 20230130
  Receipt Date: 20230130
  Transmission Date: 20230417
  Serious: Yes (Other)
  Sender: FDA-Public Use
  Company Number: GB-MHRA-MED-202301251752168070-GHJFY

PATIENT
  Age: 48 Year
  Sex: Female
  Weight: 90 kg

DRUGS (1)
  1. ADO-TRASTUZUMAB EMTANSINE [Suspect]
     Active Substance: ADO-TRASTUZUMAB EMTANSINE
     Indication: Adverse drug reaction
     Route: 065
     Dates: start: 2022, end: 20230112

REACTIONS (1)
  - Telangiectasia [Not Recovered/Not Resolved]

NARRATIVE: CASE EVENT DATE: 20220101
